FAERS Safety Report 15868876 (Version 1)
Quarter: 2019Q1

REPORT INFORMATION
  Report Type: Spontaneous
  Country: US (occurrence: US)
  Receive Date: 20190125
  Receipt Date: 20190125
  Transmission Date: 20190417
  Serious: No
  Sender: FDA-Public Use
  Company Number: US-GLAXOSMITHKLINE-US2019009584

PATIENT
  Age: 65 Year
  Sex: Female

DRUGS (1)
  1. ABREVA [Suspect]
     Active Substance: DOCOSANOL
     Indication: ORAL HERPES
     Dosage: UNK
     Dates: start: 20190104, end: 20190106

REACTIONS (6)
  - Paraesthesia [Unknown]
  - Oral herpes [Unknown]
  - Condition aggravated [Unknown]
  - Skin burning sensation [Unknown]
  - Skin exfoliation [Unknown]
  - Pain of skin [Unknown]
